FAERS Safety Report 17888917 (Version 1)
Quarter: 2020Q2

REPORT INFORMATION
  Report Type: Spontaneous
  Country: US (occurrence: US)
  Receive Date: 20200612
  Receipt Date: 20200612
  Transmission Date: 20200714
  Serious: No
  Sender: FDA-Public Use
  Company Number: US-SA-2020SA144542

PATIENT

DRUGS (2)
  1. DUPIXENT [Suspect]
     Active Substance: DUPILUMAB
     Indication: ECZEMA
     Dosage: 2 SHOTS, 1X
     Dates: start: 20200513, end: 20200513
  2. DUPIXENT [Suspect]
     Active Substance: DUPILUMAB
     Dosage: SINGLE SHOT, QOW
     Dates: start: 20200527

REACTIONS (2)
  - Mean cell haemoglobin increased [Not Recovered/Not Resolved]
  - White blood cell count decreased [Not Recovered/Not Resolved]

NARRATIVE: CASE EVENT DATE: 20200602
